FAERS Safety Report 21160643 (Version 2)
Quarter: 2022Q3

REPORT INFORMATION
  Report Type: Spontaneous
  Country: US (occurrence: US)
  Receive Date: 20220802
  Receipt Date: 20220812
  Transmission Date: 20221027
  Serious: No
  Sender: FDA-Public Use
  Company Number: US-UNITED THERAPEUTICS-UNT-2022-016868

PATIENT
  Sex: Male
  Weight: 111.57 kg

DRUGS (4)
  1. TYVASO [Suspect]
     Active Substance: TREPROSTINIL
     Indication: Pulmonary arterial hypertension
     Dosage: UNK
     Dates: start: 20220607
  2. TYVASO [Suspect]
     Active Substance: TREPROSTINIL
     Dosage: 30 ?G (5 TIMES)
     Dates: start: 2022, end: 2022
  3. TYVASO [Suspect]
     Active Substance: TREPROSTINIL
     Dosage: 42 ?G, QID
     Dates: start: 2022, end: 2022
  4. TYVASO [Suspect]
     Active Substance: TREPROSTINIL
     Dosage: 48 ?G, QID
     Dates: start: 2022

REACTIONS (7)
  - Headache [Unknown]
  - Nausea [Unknown]
  - Dizziness [Unknown]
  - Rhinorrhoea [Unknown]
  - Product label confusion [Unknown]
  - Incorrect dose administered [Recovered/Resolved]
  - Device power source issue [Unknown]

NARRATIVE: CASE EVENT DATE: 20220101
